FAERS Safety Report 6977365-X (Version None)
Quarter: 2010Q3

REPORT INFORMATION
  Report Type: 
  Country: None (occurrence: None)
  Receive Date: 20100910
  Receipt Date: 20100831
  Transmission Date: 20110219
  Serious: Yes (Hospitalization, Other)
  Sender: FDA-Public Use
  Company Number: JP-PFIZER INC-2010098430

PATIENT
  Age: 62 Year
  Sex: Female
  Weight: 58 kg

DRUGS (7)
  1. CELECOX [Suspect]
     Indication: OEDEMA PERIPHERAL
     Dosage: 100 MG, 2X/DAY
     Route: 048
     Dates: start: 20100617, end: 20100618
  2. MICARDIS [Interacting]
     Indication: HYPERTENSION
     Dosage: 40 MG, 1X/DAY, UID
     Route: 048
     Dates: start: 20031020
  3. BEZAFIBRATE [Concomitant]
     Dosage: UNK
     Dates: start: 20020528, end: 20100618
  4. BEZAFIBRATE [Concomitant]
     Dosage: UNK
     Dates: start: 20031020
  5. MENATETRENONE [Concomitant]
     Dosage: UNK
     Route: 048
     Dates: start: 20090303, end: 20100618
  6. TEPRENONE [Concomitant]
     Dosage: UNK
     Route: 048
     Dates: start: 20100617, end: 20100618
  7. PLATIBIT [Concomitant]
     Dosage: UNK
     Dates: start: 20080110, end: 20100618

REACTIONS (11)
  - COLD SWEAT [None]
  - CONTUSION [None]
  - DRUG INTERACTION [None]
  - FALL [None]
  - FEELING ABNORMAL [None]
  - LOSS OF CONSCIOUSNESS [None]
  - PYREXIA [None]
  - SKIN LACERATION [None]
  - SPINAL COMPRESSION FRACTURE [None]
  - URTICARIA [None]
  - VOMITING [None]
